FAERS Safety Report 6443764-8 (Version None)
Quarter: 2009Q4

REPORT INFORMATION
  Report Type: 
  Country: None (occurrence: None)
  Receive Date: 20091117
  Receipt Date: 20091111
  Transmission Date: 20100525
  Serious: No
  Sender: FDA-Public Use
  Company Number: US-B.I. PHARMACEUTICALS,INC./RIDGEFIELD-2008-BP-14381BP

PATIENT
  Sex: Female

DRUGS (13)
  1. SPIRIVA [Suspect]
     Indication: CHRONIC OBSTRUCTIVE PULMONARY DISEASE
     Dosage: 18 MCG
     Route: 055
     Dates: start: 20040101
  2. SPIRIVA [Suspect]
     Indication: ASTHMA
  3. FLOVENT [Concomitant]
     Indication: CHRONIC OBSTRUCTIVE PULMONARY DISEASE
  4. SEREVENT [Concomitant]
     Indication: CHRONIC OBSTRUCTIVE PULMONARY DISEASE
     Route: 055
  5. ACCOLATE [Concomitant]
     Indication: CHRONIC OBSTRUCTIVE PULMONARY DISEASE
  6. ALBUTEROL [Concomitant]
     Indication: CHRONIC OBSTRUCTIVE PULMONARY DISEASE
     Route: 055
  7. CELEBREX [Concomitant]
     Indication: ARTHRITIS
  8. FEXOFENADINE [Concomitant]
  9. PRILOSEC [Concomitant]
  10. WELLBUTRIN [Concomitant]
  11. ESTROGEN PATCH [Concomitant]
  12. BUPROPION HCL [Concomitant]
  13. ZYRTEC [Concomitant]

REACTIONS (3)
  - CHEST DISCOMFORT [None]
  - DRUG INEFFECTIVE [None]
  - DYSPNOEA [None]
